FAERS Safety Report 18451954 (Version 4)
Quarter: 2021Q1

REPORT INFORMATION
  Report Type: Report from Study
  Country: US (occurrence: US)
  Receive Date: 20201102
  Receipt Date: 20210217
  Transmission Date: 20210419
  Serious: Yes (Hospitalization)
  Sender: FDA-Public Use
  Company Number: NVSC2020US285682

PATIENT
  Sex: Female

DRUGS (1)
  1. MAYZENT [Suspect]
     Active Substance: SIPONIMOD
     Indication: PRODUCT USED FOR UNKNOWN INDICATION
     Dosage: 2 MG, QD
     Route: 048

REACTIONS (8)
  - Oedema peripheral [Unknown]
  - Insomnia [Unknown]
  - Fatigue [Unknown]
  - Fall [Unknown]
  - Multiple sclerosis [Unknown]
  - Gait disturbance [Unknown]
  - Balance disorder [Unknown]
  - Ear injury [Unknown]
